FAERS Safety Report 5724010-7 (Version None)
Quarter: 2008Q2

REPORT INFORMATION
  Report Type: 
  Country: None (occurrence: None)
  Receive Date: 20080430
  Receipt Date: 20080421
  Transmission Date: 20081010
  Serious: Yes (Other)
  Sender: FDA-Public Use
  Company Number: DK-ASTRAZENECA-2008SE02062

PATIENT
  Sex: Male

DRUGS (1)
  1. SELOZOK [Suspect]
     Route: 048
     Dates: start: 20060801

REACTIONS (1)
  - VISUAL DISTURBANCE [None]
